FAERS Safety Report 5317972-3 (Version None)
Quarter: 2007Q2

REPORT INFORMATION
  Report Type: 
  Country: None (occurrence: None)
  Receive Date: 20070507
  Receipt Date: 20070424
  Transmission Date: 20071010
  Serious: Yes (Other)
  Sender: FDA-Public Use
  Company Number: AT-MERCK-0704AUT00007

PATIENT
  Age: 67 Year
  Sex: Female
  Weight: 90 kg

DRUGS (14)
  1. ERTAPENEM SODIUM [Suspect]
     Indication: DIABETIC FOOT INFECTION
     Route: 041
     Dates: start: 20070320, end: 20070328
  2. AMOXICILLIN AND CLAVULANATE POTASSIUM [Concomitant]
     Indication: DIABETIC FOOT INFECTION
     Route: 042
     Dates: end: 20070301
  3. CANDESARTAN CILEXETIL AND HYDROCHLOROTHIAZIDE [Concomitant]
     Route: 048
  4. CANDESARTAN CILEXETIL AND HYDROCHLOROTHIAZIDE [Concomitant]
     Route: 048
  5. CARVEDILOL [Concomitant]
     Route: 048
  6. PROTHIPENDYL HYDROCHLORIDE [Concomitant]
     Route: 048
  7. BITOLTEROL MESYLATE [Concomitant]
     Route: 048
  8. FUSIDATE SODIUM [Concomitant]
     Indication: DIABETIC FOOT INFECTION
     Route: 041
     Dates: end: 20070301
  9. PIPERACILLIN SODIUM AND TAZOBACTAM SODIUM [Concomitant]
     Indication: DIABETIC FOOT INFECTION
     Route: 051
     Dates: end: 20070301
  10. FUROSEMIDE [Concomitant]
     Route: 048
  11. RILMENIDINE PHOSPHATE [Concomitant]
     Route: 048
  12. INSULIN, BIPHASIC ISOPHANE [INJECTION] [Concomitant]
     Route: 051
  13. PANTOPRAZOLE SODIUM [Concomitant]
     Route: 048
  14. SIMVASTATIN [Concomitant]
     Route: 048

REACTIONS (3)
  - HEMIPARESIS [None]
  - MUSCULAR WEAKNESS [None]
  - PSYCHOTIC DISORDER [None]
